FAERS Safety Report 23263566 (Version 2)
Quarter: 2025Q2

REPORT INFORMATION
  Report Type: Spontaneous
  Country: FR (occurrence: FR)
  Receive Date: 20231205
  Receipt Date: 20250617
  Transmission Date: 20250716
  Serious: Yes (Other)
  Sender: PFIZER
  Company Number: None

PATIENT
  Age: 57 Year
  Sex: Male
  Weight: 94.6 kg

DRUGS (17)
  1. XALKORI [Suspect]
     Active Substance: CRIZOTINIB
     Indication: Lung adenocarcinoma stage IV
     Dosage: 2 DF, DAILY
     Route: 048
     Dates: start: 20230828
  2. RACECADOTRIL [Concomitant]
     Active Substance: RACECADOTRIL
  3. RACECADOTRIL [Concomitant]
     Active Substance: RACECADOTRIL
  4. FOLIC ACID [Concomitant]
     Active Substance: FOLIC ACID
  5. FOLIC ACID [Concomitant]
     Active Substance: FOLIC ACID
  6. INSULIN HUMAN [Concomitant]
     Active Substance: INSULIN HUMAN
  7. KARDEGIC [Concomitant]
     Active Substance: ASPIRIN DL-LYSINE
  8. PANTOPRAZOLE [Concomitant]
     Active Substance: PANTOPRAZOLE
  9. BISOPROLOL FUMARATE [Concomitant]
     Active Substance: BISOPROLOL FUMARATE
  10. FUROSEMIDE [Concomitant]
     Active Substance: FUROSEMIDE
  11. PREDNISOLONE SODIUM METAZOATE [Concomitant]
     Active Substance: PREDNISOLONE SODIUM METAZOATE
  12. APIXABAN [Concomitant]
     Active Substance: APIXABAN
  13. GABAPENTIN [Concomitant]
     Active Substance: GABAPENTIN
  14. HUMALOG [Concomitant]
     Active Substance: INSULIN LISPRO
  15. POTASSIUM CHLORIDE [Concomitant]
     Active Substance: POTASSIUM CHLORIDE
  16. VALACYCLOVIR HYDROCHLORIDE [Concomitant]
     Active Substance: VALACYCLOVIR HYDROCHLORIDE
  17. FLUCONAZOLE [Concomitant]
     Active Substance: FLUCONAZOLE

REACTIONS (1)
  - Recall phenomenon [Recovered/Resolved]

NARRATIVE: CASE EVENT DATE: 20230917
